FAERS Safety Report 23517628 (Version 6)
Quarter: 2024Q2

REPORT INFORMATION
  Report Type: Report from Study
  Country: US (occurrence: US)
  Receive Date: 20240213
  Receipt Date: 20240624
  Transmission Date: 20240716
  Serious: Yes (Other)
  Sender: FDA-Public Use
  Company Number: US-PFIZER INC-202400036140

PATIENT
  Age: 72 Year
  Sex: Female

DRUGS (14)
  1. IBRANCE [Suspect]
     Active Substance: PALBOCICLIB
     Dosage: 100 MG DAILY X 3 WEEKS ON AND 1 WEEK OFF EVERY 28 DAYS
     Dates: start: 20231129
  2. IBRANCE [Suspect]
     Active Substance: PALBOCICLIB
     Dosage: DAILY FOR 3 WEEKS ON AND 1 WEEK OFF EVERY 28 DAYS, 100MG DAILY ON DAYS 1-21 OF 28 DAY CYCLE
     Dates: start: 20240110
  3. ANASTROZOLE [Concomitant]
     Active Substance: ANASTROZOLE
  4. PANTOPRAZOLE [Concomitant]
     Active Substance: PANTOPRAZOLE
  5. VITAMIN C [Concomitant]
     Active Substance: ASCORBIC ACID
  6. ZINC [Concomitant]
     Active Substance: PYRITHIONE ZINC\ZINC\ZINC CHLORIDE
  7. BIOTIN [Concomitant]
     Active Substance: BIOTIN
  8. MAGNESIUM [Concomitant]
     Active Substance: MAGNESIUM
  9. CHOLECALCIFEROL [Concomitant]
     Active Substance: CHOLECALCIFEROL
  10. VITAMIN K [Concomitant]
     Active Substance: PHYTONADIONE
  11. RETINOL [Concomitant]
     Active Substance: RETINOL
  12. COLLAGEN [Concomitant]
     Active Substance: COLLAGEN
  13. CYANOCOBALAMIN [Concomitant]
     Active Substance: CYANOCOBALAMIN
  14. AZADIRACHTA INDICA BARK [Concomitant]
     Active Substance: AZADIRACHTA INDICA BARK

REACTIONS (19)
  - Nail disorder [Not Recovered/Not Resolved]
  - Nail bed bleeding [Unknown]
  - Onychomycosis [Unknown]
  - Neuropathy peripheral [Recovering/Resolving]
  - Onychoclasis [Not Recovered/Not Resolved]
  - Hypoaesthesia [Not Recovered/Not Resolved]
  - Gait disturbance [Unknown]
  - Altered visual depth perception [Unknown]
  - Memory impairment [Unknown]
  - Dysphonia [Unknown]
  - Eye disorder [Unknown]
  - Alopecia [Not Recovered/Not Resolved]
  - Rash [Not Recovered/Not Resolved]
  - Skin atrophy [Not Recovered/Not Resolved]
  - Increased tendency to bruise [Not Recovered/Not Resolved]
  - Erythema [Not Recovered/Not Resolved]
  - Lacrimation increased [Not Recovered/Not Resolved]
  - Fatigue [Not Recovered/Not Resolved]
  - Lung disorder [Not Recovered/Not Resolved]

NARRATIVE: CASE EVENT DATE: 20240101
